FAERS Safety Report 19074194 (Version 1)
Quarter: 2021Q1

REPORT INFORMATION
  Report Type: Spontaneous
  Country: TW (occurrence: TW)
  Receive Date: 20210330
  Receipt Date: 20210330
  Transmission Date: 20210420
  Serious: Yes (Other)
  Sender: FDA-Public Use
  Company Number: TW-PFIZER INC-2021302490

PATIENT
  Sex: Female

DRUGS (1)
  1. LIPITOR [Suspect]
     Active Substance: ATORVASTATIN CALCIUM
     Indication: BLOOD TRIGLYCERIDES INCREASED
     Dosage: 20 MG, QD

REACTIONS (3)
  - Vasodilatation [Unknown]
  - Labelled drug-food interaction medication error [Unknown]
  - Headache [Unknown]

NARRATIVE: CASE EVENT DATE: 202103
